FAERS Safety Report 7504177-0 (Version None)
Quarter: 2011Q2

REPORT INFORMATION
  Report Type: 
  Country: None (occurrence: None)
  Receive Date: 20110401
  Receipt Date: 20110301
  Transmission Date: 20111010
  Serious: No
  Sender: FDA-Public Use
  Company Number: US-004840

PATIENT
  Sex: Male
  Weight: 73.4827 kg

DRUGS (2)
  1. FIRMAGON [Suspect]
     Indication: PROSTATE CANCER
     Dosage: 240 MG TOTAL SUBCUTANEOUS, 80 MG 1X/MONTH SUBCUTANEOUS
     Route: 058
     Dates: start: 20101111, end: 20101111
  2. FIRMAGON [Suspect]
     Indication: PROSTATE CANCER
     Dosage: 240 MG TOTAL SUBCUTANEOUS, 80 MG 1X/MONTH SUBCUTANEOUS
     Route: 058
     Dates: start: 20101210

REACTIONS (9)
  - PROSTATIC SPECIFIC ANTIGEN INCREASED [None]
  - INJECTION SITE MASS [None]
  - INJECTION SITE DISCOLOURATION [None]
  - BONE PAIN [None]
  - DYSURIA [None]
  - INJECTION SITE PAIN [None]
  - MUSCULOSKELETAL DISCOMFORT [None]
  - INJECTION SITE ERYTHEMA [None]
  - HOT FLUSH [None]
